FAERS Safety Report 7091200-3 (Version None)
Quarter: 2010Q4

REPORT INFORMATION
  Report Type: 
  Country: None (occurrence: None)
  Receive Date: 20101109
  Receipt Date: 20101028
  Transmission Date: 20110411
  Serious: Yes (Hospitalization)
  Sender: FDA-Public Use
  Company Number: IT-ROCHE-732422

PATIENT
  Sex: Female

DRUGS (6)
  1. TORADOL [Suspect]
     Dosage: REPORTED AS: TORADOL 10 MG, FORM: FILM COATED TABLETS, FREQUENCY: QD
     Route: 048
     Dates: start: 20100715, end: 20100720
  2. DICLOREUM [Suspect]
     Dosage: DOSE FORM: TAB PR, FREQUENCY: QD
     Route: 048
     Dates: start: 20100715, end: 20100720
  3. ACETYLSALICYLIC ACID [Concomitant]
     Dates: start: 20100101, end: 20100720
  4. METFORMIN HCL [Concomitant]
  5. CARVEDILOL [Concomitant]
  6. TRIATEC [Concomitant]

REACTIONS (4)
  - ANAEMIA [None]
  - DECREASED APPETITE [None]
  - THROMBOCYTOPENIA [None]
  - VOMITING [None]
